FAERS Safety Report 7636435-3 (Version None)
Quarter: 2011Q3

REPORT INFORMATION
  Report Type: 
  Country: None (occurrence: None)
  Receive Date: 20110726
  Receipt Date: 20110720
  Transmission Date: 20111222
  Serious: Yes (Hospitalization)
  Sender: FDA-Public Use
  Company Number: VE-BRISTOL-MYERS SQUIBB COMPANY-15611908

PATIENT
  Age: 54 Year
  Sex: Female

DRUGS (1)
  1. IXEMPRA KIT [Suspect]
     Dosage: CYCLE:4

REACTIONS (5)
  - ANTEROGRADE AMNESIA [None]
  - DIPLOPIA [None]
  - DYSLEXIA [None]
  - CONVULSION [None]
  - MENTAL DISORDER [None]
